FAERS Safety Report 19048150 (Version 3)
Quarter: 2021Q4

REPORT INFORMATION
  Report Type: Spontaneous
  Country: US (occurrence: US)
  Receive Date: 20210323
  Receipt Date: 20211207
  Transmission Date: 20220303
  Serious: No
  Sender: FDA-Public Use
  Company Number: US-PFIZER INC-2021228939

PATIENT
  Age: 11 Year
  Sex: Male
  Weight: 41.28 kg

DRUGS (1)
  1. GENOTROPIN [Suspect]
     Active Substance: SOMATROPIN
     Indication: Growth disorder
     Dosage: 1.4 MG, DAILY (IN UPPER THIGH)
     Dates: start: 201712

REACTIONS (4)
  - Psychomotor hyperactivity [Unknown]
  - Feeling hot [Unknown]
  - Poor quality device used [Unknown]
  - Device issue [Unknown]
